FAERS Safety Report 7416923-5 (Version None)
Quarter: 2011Q2

REPORT INFORMATION
  Report Type: 
  Country: None (occurrence: None)
  Receive Date: 20110415
  Receipt Date: 20110406
  Transmission Date: 20111010
  Serious: Yes (Hospitalization, Disabling, Other)
  Sender: FDA-Public Use
  Company Number: GB-JNJFOC-20110202343

PATIENT
  Sex: Female

DRUGS (5)
  1. RISPERIDONE [Suspect]
     Route: 065
  2. RISPERIDONE [Suspect]
     Indication: PSYCHOTIC DISORDER
     Route: 065
  3. QUETIAPINE [Concomitant]
     Indication: ILL-DEFINED DISORDER
     Route: 065
  4. RISPERIDONE [Suspect]
     Route: 065
  5. RISPERIDONE [Suspect]
     Indication: DEPRESSION
     Route: 065

REACTIONS (8)
  - DYSTONIA [None]
  - HYPOAESTHESIA [None]
  - PSYCHIATRIC SYMPTOM [None]
  - TREATMENT NONCOMPLIANCE [None]
  - NONSPECIFIC REACTION [None]
  - ASTHENOPIA [None]
  - SUICIDE ATTEMPT [None]
  - SCIATICA [None]
